FAERS Safety Report 9197724 (Version 1)
Quarter: 2013Q1

REPORT INFORMATION
  Report Type: Spontaneous
  Country: US (occurrence: US)
  Receive Date: 20130328
  Receipt Date: 20130328
  Transmission Date: 20140127
  Serious: Yes (Death)
  Sender: FDA-Public Use
  Company Number: US-PFIZER INC-2013097881

PATIENT
  Age: 11 Year
  Sex: Female

DRUGS (1)
  1. CHLORAMPHENICOL [Suspect]
     Dosage: 0.25 G, EVERY 2-3 MONTHS
     Route: 030

REACTIONS (1)
  - Aplastic anaemia [Fatal]
